FAERS Safety Report 16230613 (Version 1)
Quarter: 2019Q2

REPORT INFORMATION
  Report Type: Report from Study
  Country: US (occurrence: US)
  Receive Date: 20190423
  Receipt Date: 20190423
  Transmission Date: 20190711
  Serious: Yes (Hospitalization)
  Sender: FDA-Public Use
  Company Number: US-ACTELION-A-NJ2019-189454

PATIENT
  Sex: Female
  Weight: 108.84 kg

DRUGS (2)
  1. OPSUMIT [Concomitant]
     Active Substance: MACITENTAN
  2. UPTRAVI [Suspect]
     Active Substance: SELEXIPAG
     Indication: PULMONARY ARTERIAL HYPERTENSION
     Dosage: 1400 MCG, BID
     Route: 048

REACTIONS (2)
  - Fall [Unknown]
  - Dehydration [Unknown]
